FAERS Safety Report 9154713 (Version 2)
Quarter: 2013Q1

REPORT INFORMATION
  Report Type: Spontaneous
  Country: US (occurrence: None)
  Receive Date: 20130212
  Receipt Date: 20130307
  Transmission Date: 20140127
  Serious: No
  Sender: FDA-Public Use
  Company Number: VAL_01382_2013

PATIENT
  Sex: Female

DRUGS (1)
  1. LOPRESSOR [Suspect]
     Indication: PRODUCT USED FOR UNKNOWN INDICATION
     Dosage: (50 MG, DF)

REACTIONS (4)
  - Extrasystoles [None]
  - Heart rate increased [None]
  - Nervousness [None]
  - Wrong technique in drug usage process [None]
